FAERS Safety Report 6779028-2 (Version None)
Quarter: 2010Q2

REPORT INFORMATION
  Report Type: 
  Country: None (occurrence: None)
  Receive Date: 20100618
  Receipt Date: 20100610
  Transmission Date: 20101027
  Serious: Yes (Other)
  Sender: FDA-Public Use
  Company Number: JP-SANOFI-AVENTIS-2010SA033549

PATIENT
  Age: 52 Year
  Sex: Female
  Weight: 63 kg

DRUGS (8)
  1. ARAVA [Suspect]
     Indication: RHEUMATOID ARTHRITIS
     Route: 048
     Dates: start: 20100115, end: 20100312
  2. ARAVA [Suspect]
     Route: 048
     Dates: start: 20100313, end: 20100409
  3. ARAVA [Suspect]
     Route: 048
     Dates: start: 20100410, end: 20100416
  4. PREDONINE [Concomitant]
     Indication: RHEUMATOID ARTHRITIS
     Route: 048
  5. LANSOPRAZOLE [Concomitant]
     Indication: REFLUX OESOPHAGITIS
     Route: 048
  6. BONALON [Concomitant]
     Indication: OSTEOPOROSIS
     Dosage: 35MG/WEEK
     Route: 048
  7. FERROMIA [Concomitant]
     Indication: IRON DEFICIENCY ANAEMIA
     Route: 048
  8. CELECOXIB [Concomitant]
     Indication: RHEUMATOID ARTHRITIS
     Route: 048

REACTIONS (5)
  - ALANINE AMINOTRANSFERASE INCREASED [None]
  - ASPARTATE AMINOTRANSFERASE INCREASED [None]
  - BLOOD ALKALINE PHOSPHATASE INCREASED [None]
  - BLOOD LACTATE DEHYDROGENASE INCREASED [None]
  - GAMMA-GLUTAMYLTRANSFERASE INCREASED [None]
